FAERS Safety Report 9387437 (Version 1)
Quarter: 2013Q3

REPORT INFORMATION
  Report Type: Spontaneous
  Country: US (occurrence: US)
  Receive Date: 20130708
  Receipt Date: 20130708
  Transmission Date: 20140515
  Serious: Yes (Disabling)
  Sender: FDA-Public Use
  Company Number: US-EISAI INC-E7389-03985-SPO-US

PATIENT
  Age: 40 Year
  Sex: Female

DRUGS (1)
  1. HALAVEN [Suspect]
     Indication: BREAST CANCER
     Dosage: UNKNOWN
     Route: 041

REACTIONS (3)
  - Arthritis [Unknown]
  - Arthralgia [Unknown]
  - Arthralgia [Recovering/Resolving]
